FAERS Safety Report 7209662-7 (Version None)
Quarter: 2011Q1

REPORT INFORMATION
  Report Type: 
  Country: None (occurrence: None)
  Receive Date: 20110103
  Receipt Date: 20110103
  Transmission Date: 20110831
  Serious: No
  Sender: FDA-Public Use
  Company Number: None

PATIENT
  Age: 42 Year
  Sex: Female
  Weight: 55.7924 kg

DRUGS (1)
  1. CREST PRO-HEALTH ORAL RINSE PROCTER + GAMBLE [Suspect]
     Indication: DENTAL CARE
     Dosage: 10 ML TWICE DAILY PO
     Route: 048
     Dates: start: 20101201, end: 20101229

REACTIONS (2)
  - PRODUCT LABEL ISSUE [None]
  - AGEUSIA [None]
